FAERS Safety Report 15617835 (Version 2)
Quarter: 2018Q4

REPORT INFORMATION
  Report Type: Report from Study
  Country: ES (occurrence: ES)
  Receive Date: 20181114
  Receipt Date: 20181226
  Transmission Date: 20190205
  Serious: Yes (Hospitalization)
  Sender: FDA-Public Use
  Company Number: ES-PFIZER INC-2018461121

PATIENT
  Age: 67 Year
  Sex: Female
  Weight: 51 kg

DRUGS (12)
  1. FLUOROURACIL. [Suspect]
     Active Substance: FLUOROURACIL
     Indication: PANCREATIC CARCINOMA METASTATIC
     Dosage: 575 MG, CYCLIC
     Route: 040
     Dates: start: 20180905, end: 20181019
  2. FENTANYL TTS SANDOZ [Concomitant]
     Indication: FLANK PAIN
     Dosage: UNK
     Dates: start: 20180918
  3. FENTANYL TTS SANDOZ [Concomitant]
     Indication: ABDOMINAL PAIN
  4. LEUCOVORIN. [Suspect]
     Active Substance: LEUCOVORIN
     Indication: PANCREATIC CARCINOMA METASTATIC
     Dosage: 575 MG, CYCLIC, ON DAY 1
     Route: 042
     Dates: start: 20180905, end: 20181017
  5. OXALIPLATIN. [Suspect]
     Active Substance: OXALIPLATIN
     Indication: PANCREATIC CARCINOMA METASTATIC
     Dosage: 122 MG, CYCLIC, ON DAY 1
     Route: 042
     Dates: start: 20180905, end: 20181017
  6. AVARIC [Concomitant]
     Indication: ABDOMINAL PAIN
  7. ESIDREX [Concomitant]
     Active Substance: HYDROCHLOROTHIAZIDE
     Indication: HYPERTENSION
     Dosage: UNK
     Dates: start: 20180219
  8. ENANTYUM [Concomitant]
     Active Substance: DEXKETOPROFEN TROMETAMOL
     Indication: ABDOMINAL PAIN
  9. FLUOROURACIL. [Suspect]
     Active Substance: FLUOROURACIL
     Dosage: 3450 MG, CYCLIC, ON DAY 1, OF A 14 DAY CYCLE
     Route: 042
     Dates: start: 20180905, end: 20181019
  10. ENANTYUM [Concomitant]
     Active Substance: DEXKETOPROFEN TROMETAMOL
     Indication: FLANK PAIN
     Dosage: UNK
     Dates: start: 20180904
  11. AVARIC [Concomitant]
     Indication: FLANK PAIN
     Dosage: UNK
     Dates: start: 20180904
  12. PRIMPERAN [Concomitant]
     Active Substance: METOCLOPRAMIDE HYDROCHLORIDE
     Indication: NAUSEA
     Dosage: UNK
     Dates: start: 20180908

REACTIONS (4)
  - Pyrexia [Recovered/Resolved]
  - Hypokalaemia [Recovered/Resolved]
  - Diarrhoea [Recovered/Resolved]
  - Neutropenia [Recovered/Resolved]

NARRATIVE: CASE EVENT DATE: 20181028
